FAERS Safety Report 23969938 (Version 1)
Quarter: 2024Q2

REPORT INFORMATION
  Report Type: Spontaneous
  Country: US (occurrence: US)
  Receive Date: 20240613
  Receipt Date: 20240613
  Transmission Date: 20240716
  Serious: No
  Sender: FDA-Public Use
  Company Number: US-BIOVITRUM-2024-US-008474

PATIENT
  Age: 24 Month
  Sex: Female

DRUGS (1)
  1. SYNAGIS [Suspect]
     Active Substance: PALIVIZUMAB
     Indication: Premature baby
     Dosage: EVERY 28DAYS -30DAYS
     Route: 030
     Dates: start: 20240220

REACTIONS (3)
  - Nasopharyngitis [Recovering/Resolving]
  - Product storage error [Unknown]
  - Product dose omission issue [Unknown]

NARRATIVE: CASE EVENT DATE: 20240506
